FAERS Safety Report 7130175-5 (Version None)
Quarter: 2010Q4

REPORT INFORMATION
  Report Type: 
  Country: None (occurrence: None)
  Receive Date: 20101116
  Receipt Date: 20101103
  Transmission Date: 20110411
  Serious: Yes (Other)
  Sender: FDA-Public Use
  Company Number: TUK2010A00299

PATIENT
  Sex: Male

DRUGS (1)
  1. ACTOPLUS MET [Suspect]
     Indication: PRODUCT USED FOR UNKNOWN INDICATION
     Dosage: ONE TAKEN TWICE DAILY (2 IN 1 D)
     Dates: start: 20101001

REACTIONS (4)
  - ABDOMINAL PAIN UPPER [None]
  - CHEST PAIN [None]
  - HYPERHIDROSIS [None]
  - NAUSEA [None]
